FAERS Safety Report 17939363 (Version 7)
Quarter: 2021Q1

REPORT INFORMATION
  Report Type: Report from Study
  Country: None (occurrence: US)
  Receive Date: 20200625
  Receipt Date: 20210213
  Transmission Date: 20210419
  Serious: Yes (Other)
  Sender: FDA-Public Use
  Company Number: US-ABBVIE-20K-163-3456311-00

PATIENT
  Sex: Female

DRUGS (5)
  1. VENCLEXTA [Suspect]
     Active Substance: VENETOCLAX
     Route: 048
  2. VENCLEXTA [Suspect]
     Active Substance: VENETOCLAX
     Route: 048
  3. VENCLEXTA [Suspect]
     Active Substance: VENETOCLAX
     Indication: PLASMA CELL MYELOMA
     Dosage: TAKE EIGHT TABLETS BY MOUTH ONCE DAILY
     Route: 048
  4. VENCLEXTA [Suspect]
     Active Substance: VENETOCLAX
     Route: 048
  5. VENCLEXTA [Suspect]
     Active Substance: VENETOCLAX
     Route: 048

REACTIONS (14)
  - Eye pruritus [Unknown]
  - Neoplasm malignant [Unknown]
  - Chest discomfort [Unknown]
  - Sneezing [Unknown]
  - Headache [Unknown]
  - Upper-airway cough syndrome [Unknown]
  - Asthenia [Unknown]
  - Deafness [Unknown]
  - Gait disturbance [Unknown]
  - Off label use [Unknown]
  - Memory impairment [Unknown]
  - Nasopharyngitis [Unknown]
  - Monoclonal immunoglobulin present [Unknown]
  - Fatigue [Unknown]

NARRATIVE: CASE EVENT DATE: 2020
